FAERS Safety Report 8289972-5 (Version None)
Quarter: 2012Q2

REPORT INFORMATION
  Report Type: 
  Country: None (occurrence: None)
  Receive Date: 20120417
  Receipt Date: 20120402
  Transmission Date: 20120825
  Serious: Yes (Hospitalization)
  Sender: FDA-Public Use
  Company Number: DE-ROCHE-1055865

PATIENT
  Sex: Female
  Weight: 78 kg

DRUGS (7)
  1. ASPIRIN [Concomitant]
     Route: 065
  2. XELODA [Suspect]
     Indication: BREAST CANCER
     Dosage: DATE OF LAST DOSE PRIOR TO SAE 18/MAR/2012
     Route: 048
     Dates: start: 20120223
  3. LEVOTHYROXINE SODIUM [Concomitant]
     Route: 065
  4. DELIX [Concomitant]
     Route: 065
  5. BISOPROLOL FUMARATE [Concomitant]
     Route: 065
  6. SIMVASTATIN [Concomitant]
     Route: 065
  7. PACLITAXEL [Suspect]
     Indication: BREAST CANCER
     Dosage: DATE OF LAST DOSE PRIOR TO SAE 15/MAR/2012
     Route: 042
     Dates: start: 20120223

REACTIONS (1)
  - GENERAL PHYSICAL HEALTH DETERIORATION [None]
